FAERS Safety Report 8303002-8 (Version None)
Quarter: 2012Q2

REPORT INFORMATION
  Report Type: 
  Country: None (occurrence: None)
  Receive Date: 20120420
  Receipt Date: 20120413
  Transmission Date: 20120825
  Serious: Yes (Other)
  Sender: FDA-Public Use
  Company Number: US-PFIZER INC-2012073257

PATIENT
  Sex: Female

DRUGS (2)
  1. SULFASALAZINE [Suspect]
     Indication: COLITIS ULCERATIVE
     Dosage: UNK
  2. ZANTAC [Suspect]
     Dosage: UNK

REACTIONS (3)
  - PYREXIA [None]
  - RASH GENERALISED [None]
  - DRUG HYPERSENSITIVITY [None]
